FAERS Safety Report 17090626 (Version 1)
Quarter: 2019Q4

REPORT INFORMATION
  Report Type: Spontaneous
  Country: GB (occurrence: GB)
  Receive Date: 20191129
  Receipt Date: 20191129
  Transmission Date: 20200122
  Serious: Yes (Hospitalization)
  Sender: FDA-Public Use
  Company Number: GB-SAMSUNG BIOEPIS-SB-2019-35005

PATIENT
  Age: 59 Year
  Sex: Female
  Weight: 57.8 kg

DRUGS (2)
  1. PERTUZUMAB. [Concomitant]
     Active Substance: PERTUZUMAB
     Indication: PRODUCT USED FOR UNKNOWN INDICATION
     Dosage: UNKNOWN
     Route: 065
  2. ONTRUZANT [Suspect]
     Active Substance: TRASTUZUMAB-DTTB
     Indication: BREAST CANCER METASTATIC
     Route: 042
     Dates: start: 20190103, end: 20190228

REACTIONS (6)
  - Small intestinal obstruction [Recovering/Resolving]
  - Gastrointestinal inflammation [Unknown]
  - Malaise [Unknown]
  - Abdominal adhesions [Unknown]
  - Product substitution issue [Unknown]
  - Abdominal pain [Unknown]

NARRATIVE: CASE EVENT DATE: 20190303
